FAERS Safety Report 6972813 (Version 7)
Quarter: 2020Q3

REPORT INFORMATION
  Report Type: Report from Study
  Country: JP (occurrence: JP)
  Receive Date: 20090420
  Receipt Date: 20090803
  Transmission Date: 20201105
  Serious: Yes (Death, Other)
  Sender: FDA-Public Use
  Company Number: JP-JNJFOC-20090404431

PATIENT
  Age: 79 Year
  Sex: Male
  Weight: 52 kg

DRUGS (36)
  1. DEQUALINIUM CHLORIDE [Concomitant]
     Active Substance: DEQUALINIUM CHLORIDE
     Indication: OROPHARYNGEAL DISCOMFORT
     Route: 065
  2. SODIUM BICARBONATE. [Concomitant]
     Active Substance: SODIUM BICARBONATE
     Indication: DECREASED APPETITE
     Route: 065
  3. BISACODYL. [Concomitant]
     Active Substance: BISACODYL
     Indication: CONSTIPATION
  4. XYLOCAINE [Concomitant]
     Active Substance: LIDOCAINE HYDROCHLORIDE
  5. METHYLPREDNISOLONE SODIUM SUCCINATE. [Concomitant]
     Active Substance: METHYLPREDNISOLONE SODIUM SUCCINATE
  6. CONCENTRATED RED BLOOD CELLS [Concomitant]
  7. PRONASE [Concomitant]
  8. PURSENNID [Concomitant]
  9. VEEN D [Concomitant]
     Indication: DECREASED APPETITE
     Route: 065
  10. HYALURONATE SODIUM [Concomitant]
     Active Substance: HYALURONATE SODIUM
  11. NEUTROGIN [Concomitant]
     Active Substance: LENOGRASTIM
  12. AMINOPHYLLINE. [Concomitant]
     Active Substance: AMINOPHYLLINE
  13. EPINEPHRINE HYDROCHLORIDE. [Concomitant]
     Active Substance: EPINEPHRINE HYDROCHLORIDE
  14. NU?LOTAN [Concomitant]
     Active Substance: LOSARTAN POTASSIUM
     Indication: HYPERTENSION
     Route: 065
  15. HACHIAZULE [Concomitant]
  16. VOLTAREN [Concomitant]
     Active Substance: DICLOFENAC SODIUM
  17. MEROPENEM. [Concomitant]
     Active Substance: MEROPENEM
  18. FULCALIQ [Concomitant]
     Active Substance: AMINO ACIDS\CARBOHYDRATES\ELECTROLYTES NOS\VITAMINS
  19. MAXIPIME [Concomitant]
     Active Substance: CEFEPIME HYDROCHLORIDE
     Indication: PYREXIA
     Route: 065
  20. SODIUM ALGINATE [Concomitant]
     Active Substance: SODIUM ALGINATE
  21. ISODINE [Concomitant]
     Active Substance: POVIDONE-IODINE
  22. MORPHINE [Concomitant]
     Active Substance: MORPHINE
  23. OXYGEN. [Concomitant]
     Active Substance: OXYGEN
  24. HYPEN [ETODOLAC] [Concomitant]
     Active Substance: ETODOLAC
     Indication: DECREASED APPETITE
     Route: 065
  25. ROPION [Concomitant]
     Indication: CANCER PAIN
     Route: 065
  26. TAPENTADOL HYDROCHLORIDE [Suspect]
     Active Substance: TAPENTADOL HYDROCHLORIDE
     Route: 048
  27. TAPENTADOL HYDROCHLORIDE [Suspect]
     Active Substance: TAPENTADOL HYDROCHLORIDE
     Indication: CANCER PAIN
     Route: 048
  28. LASIX [Concomitant]
     Active Substance: FUROSEMIDE
     Indication: OLIGURIA
     Route: 050
  29. GLUCAGON. [Concomitant]
     Active Substance: GLUCAGON
  30. GASCON [Concomitant]
  31. MYSLEE [Concomitant]
     Active Substance: ZOLPIDEM TARTRATE
     Indication: INSOMNIA
     Route: 065
  32. LANSOPRAZOLE. [Concomitant]
     Active Substance: LANSOPRAZOLE
  33. SODIUM PICOSULFATE [Concomitant]
     Active Substance: SODIUM PICOSULFATE
  34. ALLOPURINOL. [Concomitant]
     Active Substance: ALLOPURINOL
     Indication: HYPERURICAEMIA
     Route: 065
  35. OMEPRAZOLE. [Concomitant]
     Active Substance: OMEPRAZOLE
  36. SODIUM BICARBONATE. [Concomitant]
     Active Substance: SODIUM BICARBONATE

REACTIONS (3)
  - Neoplasm malignant [Fatal]
  - Gastric ulcer [Not Recovered/Not Resolved]
  - Anaemia [Unknown]

NARRATIVE: CASE EVENT DATE: 20090404
